FAERS Safety Report 7242950-7 (Version None)
Quarter: 2011Q1

REPORT INFORMATION
  Report Type: 
  Country: None (occurrence: None)
  Receive Date: 20110125
  Receipt Date: 20110120
  Transmission Date: 20110831
  Serious: Yes (Life-Threatening, Hospitalization, Congenital Anomaly)
  Sender: FDA-Public Use
  Company Number: CH-JNJFOC-20110105513

PATIENT
  Sex: Male
  Weight: 1.94 kg

DRUGS (2)
  1. METHADONE [Suspect]
     Indication: DRUG EXPOSURE DURING PREGNANCY
     Route: 064
  2. CONCERTA [Suspect]
     Indication: DRUG EXPOSURE DURING PREGNANCY
     Route: 064

REACTIONS (10)
  - BURNS SECOND DEGREE [None]
  - INGUINAL HERNIA [None]
  - EXTRAMEDULLARY HAEMOPOIESIS [None]
  - DRUG WITHDRAWAL SYNDROME NEONATAL [None]
  - ATRIOVENTRICULAR SEPTAL DEFECT [None]
  - HEPATOSPLENOMEGALY [None]
  - HAEMOLYSIS [None]
  - PORPHYRIA NON-ACUTE [None]
  - PREMATURE BABY [None]
  - THROMBOCYTOPENIA [None]
